FAERS Safety Report 5742606-3 (Version None)
Quarter: 2008Q2

REPORT INFORMATION
  Report Type: 
  Country: None (occurrence: None)
  Receive Date: 20080515
  Receipt Date: 20080515
  Transmission Date: 20081010
  Serious: No
  Sender: FDA-Public Use
  Company Number: None

PATIENT
  Age: 80 Year
  Sex: Male
  Weight: 113.6 kg

DRUGS (1)
  1. TIGECYCLINE     100MG  X1 THEN 50MG   Q12H OV[B [Suspect]
     Indication: LOCALISED INFECTION
     Dosage: 100 MG X1 THEN 50 MG Q12H  IVPB
     Route: 040

REACTIONS (11)
  - ABASIA [None]
  - ASTHENIA [None]
  - DYSPNOEA [None]
  - FEELING ABNORMAL [None]
  - FLUID OVERLOAD [None]
  - IMPAIRED HEALING [None]
  - INFECTED SKIN ULCER [None]
  - LETHARGY [None]
  - PURULENCE [None]
  - RENAL FAILURE [None]
  - WOUND INFECTION STAPHYLOCOCCAL [None]
